FAERS Safety Report 12570742 (Version 1)
Quarter: 2016Q3

REPORT INFORMATION
  Report Type: Spontaneous
  Country: US (occurrence: US)
  Receive Date: 20160719
  Receipt Date: 20160719
  Transmission Date: 20161109
  Serious: No
  Sender: FDA-Public Use
  Company Number: US-AMGEN-USASP2016048850

PATIENT
  Sex: Male

DRUGS (1)
  1. CORLANOR [Suspect]
     Active Substance: IVABRADINE HYDROCHLORIDE
     Indication: CARDIOMYOPATHY
     Dosage: UNK
     Route: 065
     Dates: start: 201604

REACTIONS (3)
  - Off label use [Unknown]
  - Fatigue [Not Recovered/Not Resolved]
  - Photopsia [Not Recovered/Not Resolved]
